FAERS Safety Report 11353316 (Version 1)
Quarter: 2015Q3

REPORT INFORMATION
  Report Type: Spontaneous
  Country: AU (occurrence: AU)
  Receive Date: 20150807
  Receipt Date: 20150807
  Transmission Date: 20151125
  Serious: Yes (Death)
  Sender: FDA-Public Use
  Company Number: AU-GLAXOSMITHKLINE INC.-AU2015GSK113774

PATIENT
  Age: 32 Year
  Sex: Female

DRUGS (7)
  1. HYDROXYCHLOROQUINE [Suspect]
     Active Substance: HYDROXYCHLOROQUINE
  2. OXYCODONE [Suspect]
     Active Substance: OXYCODONE
  3. LORAZEPAM. [Suspect]
     Active Substance: LORAZEPAM
  4. TOPIRAMATE. [Suspect]
     Active Substance: TOPIRAMATE
  5. VENLAFAXINE [Suspect]
     Active Substance: VENLAFAXINE HYDROCHLORIDE
  6. LORATIDINE [Suspect]
     Active Substance: LORATADINE
  7. QUETIAPINE [Suspect]
     Active Substance: QUETIAPINE

REACTIONS (1)
  - Bezoar [Fatal]
